FAERS Safety Report 5247936-X (Version None)
Quarter: 2007Q1

REPORT INFORMATION
  Report Type: 
  Country: None (occurrence: None)
  Receive Date: 20070226
  Receipt Date: 20070226
  Transmission Date: 20070707
  Serious: Yes (Other)
  Sender: FDA-Public Use
  Company Number: None

PATIENT
  Age: 25 Year
  Sex: Male

DRUGS (1)
  1. ALEVE [Suspect]
     Dosage: X 1 DOSE
     Dates: start: 20061020

REACTIONS (1)
  - ANAPHYLACTIC REACTION [None]
